FAERS Safety Report 10186457 (Version 1)
Quarter: 2014Q2

REPORT INFORMATION
  Report Type: Spontaneous
  Country: US (occurrence: US)
  Receive Date: 20140521
  Receipt Date: 20140521
  Transmission Date: 20141212
  Serious: No
  Sender: FDA-Public Use
  Company Number: US-ASTRAZENECA-2014SE04221

PATIENT
  Age: 81 Year
  Sex: Female
  Weight: 53.1 kg

DRUGS (6)
  1. PULMICORT FLEXHALER [Suspect]
     Indication: CHRONIC OBSTRUCTIVE PULMONARY DISEASE
     Route: 055
     Dates: start: 20140103
  2. PULMICORT FLEXHALER [Suspect]
     Indication: ASTHMA
     Route: 055
     Dates: start: 20140103
  3. LOSARTAN [Concomitant]
     Indication: HYPERTENSION
     Route: 048
     Dates: start: 2004
  4. HCT [Concomitant]
     Indication: HYPERTENSION
     Route: 048
     Dates: start: 2004
  5. PREDNISONE [Concomitant]
  6. ALBUTEROL [Concomitant]

REACTIONS (5)
  - Foreign body sensation in eyes [Unknown]
  - Dyspepsia [Unknown]
  - Paraesthesia [Unknown]
  - Fatigue [Unknown]
  - Intentional product misuse [Unknown]
